FAERS Safety Report 4440688-2 (Version None)
Quarter: 2004Q3

REPORT INFORMATION
  Report Type: 
  Country: None (occurrence: None)
  Receive Date: 20040903
  Receipt Date: 20040823
  Transmission Date: 20050211
  Serious: Yes (Death, Other)
  Sender: FDA-Public Use
  Company Number: JP-JNJFOC-20040808346

PATIENT
  Sex: Female

DRUGS (2)
  1. FENTANYL [Suspect]
     Indication: CANCER PAIN
     Route: 062
  2. METOCLOPRAMIDE [Concomitant]

REACTIONS (11)
  - ALANINE AMINOTRANSFERASE INCREASED [None]
  - ASPARTATE AMINOTRANSFERASE INCREASED [None]
  - BLOOD ALKALINE PHOSPHATASE INCREASED [None]
  - BLOOD LACTATE DEHYDROGENASE DECREASED [None]
  - CACHEXIA [None]
  - MALAISE [None]
  - NAUSEA [None]
  - RENAL FAILURE [None]
  - RESPIRATORY DEPRESSION [None]
  - SOMNOLENCE [None]
  - TACHYCARDIA [None]
